FAERS Safety Report 8414143-9 (Version None)
Quarter: 2012Q2

REPORT INFORMATION
  Report Type: 
  Country: None (occurrence: None)
  Receive Date: 20120605
  Receipt Date: 20120523
  Transmission Date: 20120825
  Serious: No
  Sender: FDA-Public Use
  Company Number: US-ASTRAZENECA-2012SE33693

PATIENT

DRUGS (2)
  1. ZOMIG [Suspect]
     Route: 045
  2. ZOMIG [Suspect]
     Route: 048

REACTIONS (3)
  - MIGRAINE [None]
  - GENERAL PHYSICAL HEALTH DETERIORATION [None]
  - VOMITING [None]
